FAERS Safety Report 8506728-6 (Version None)
Quarter: 2012Q2

REPORT INFORMATION
  Report Type: 
  Country: None (occurrence: None)
  Receive Date: 20120405
  Receipt Date: 20090309
  Transmission Date: 20120825
  Serious: Yes (Other)
  Sender: FDA-Public Use
  Company Number: PHEH2009US01790

PATIENT
  Age: 61 Year
  Sex: Female
  Weight: 76.2 kg

DRUGS (6)
  1. CELEBREX [Concomitant]
  2. ZOLOFT [Concomitant]
  3. RECLAST [Suspect]
     Indication: OSTEOPOROSIS
     Dosage: 5 MG ONCE YEARLY, INTRAVENOUS
     Route: 042
     Dates: start: 20081001, end: 20081001
  4. ENBREL [Concomitant]
  5. NEXIUM [Concomitant]
  6. SYNTHROID [Concomitant]

REACTIONS (3)
  - PAIN IN JAW [None]
  - OSTEONECROSIS [None]
  - HEADACHE [None]
